FAERS Safety Report 8611672-X (Version None)
Quarter: 2012Q3

REPORT INFORMATION
  Report Type: 
  Country: None (occurrence: None)
  Receive Date: 20120822
  Receipt Date: 20120814
  Transmission Date: 20120928
  Serious: Yes (Other)
  Sender: FDA-Public Use
  Company Number: CA-ROCHE-1067328

PATIENT
  Sex: Female

DRUGS (12)
  1. ATIVAN [Concomitant]
     Indication: SLEEP DISORDER
  2. VITAMIN D [Concomitant]
  3. COQ-10 [Concomitant]
  4. MINOCYCLINE HCL [Concomitant]
     Dates: start: 20120428
  5. MULTI-VITAMINS [Concomitant]
  6. ZELBORAF [Suspect]
     Indication: METASTATIC MALIGNANT MELANOMA
     Route: 048
     Dates: start: 20120419
  7. ZELBORAF [Suspect]
     Dosage: DOSE REDUCED.
     Route: 048
     Dates: start: 20120501
  8. POTASSIUM [Concomitant]
  9. HYDROCORTISONE [Concomitant]
     Dates: start: 20120428
  10. CORAL CALCIUM [Concomitant]
  11. SHARK LIVER OIL [Concomitant]
  12. BENADRYL [Concomitant]
     Dates: start: 20120428

REACTIONS (14)
  - SQUAMOUS CELL CARCINOMA [None]
  - MYALGIA [None]
  - EYE PAIN [None]
  - URTICARIA [None]
  - DRY EYE [None]
  - PRURITUS [None]
  - MEMORY IMPAIRMENT [None]
  - PYREXIA [None]
  - ERYTHEMA [None]
  - DRY SKIN [None]
  - ALOPECIA [None]
  - PAIN IN EXTREMITY [None]
  - SINUSITIS [None]
  - ARTHRALGIA [None]
